FAERS Safety Report 8178250 (Version 6)
Quarter: 2013Q1

REPORT INFORMATION
  Report Type: Report from Study
  Country: GB (occurrence: GB)
  Receive Date: 20111012
  Receipt Date: 20130329
  Transmission Date: 20140127
  Serious: Yes (Other)
  Sender: FDA-Public Use
  Company Number: GB-PFIZER INC-2011234725

PATIENT
  Age: 46 Year
  Sex: Female

DRUGS (27)
  1. GEMTUZUMAB OZOGAMICIN [Suspect]
     Indication: ACUTE MYELOID LEUKAEMIA
     Dosage: 3 MG, UNK
     Dates: start: 20110819, end: 20110828
  2. GEMTUZUMAB OZOGAMICIN [Suspect]
     Indication: MYELODYSPLASTIC SYNDROME
  3. ETOPOSIDE [Suspect]
     Indication: ACUTE MYELOID LEUKAEMIA
     Dosage: UNK
     Dates: start: 20110819, end: 20110828
  4. ETOPOSIDE [Suspect]
     Indication: MYELODYSPLASTIC SYNDROME
  5. CYTARABINE [Suspect]
     Indication: ACUTE MYELOID LEUKAEMIA
     Dosage: UNK
     Dates: start: 20110819, end: 20110828
  6. CYTARABINE [Suspect]
     Indication: MYELODYSPLASTIC SYNDROME
  7. TAZOCIN [Suspect]
     Dosage: 4.5 G, UNK
     Route: 042
     Dates: start: 20110822, end: 20110825
  8. NORETHISTERONE [Suspect]
     Dosage: 5 G, UNK
     Dates: start: 20110818
  9. VANCOMYCIN [Suspect]
     Dosage: 1 G, UNK
     Dates: start: 20110904, end: 20110909
  10. DAUNORUBICIN [Suspect]
     Indication: ACUTE MYELOID LEUKAEMIA
     Dosage: UNK
     Dates: start: 20110819, end: 20110828
  11. DAUNORUBICIN [Suspect]
     Indication: MYELODYSPLASTIC SYNDROME
  12. MEROPENEM [Suspect]
     Dosage: 1 G, UNK
     Route: 042
     Dates: start: 20110905, end: 20110910
  13. AMBISOME [Suspect]
     Dosage: 1000 MG, UNK
     Route: 042
     Dates: start: 20110831, end: 20110831
  14. RANITIDINE [Concomitant]
     Dosage: 150 MG, UNK
     Dates: start: 20110908, end: 20110912
  15. OMEPRAZOLE [Concomitant]
     Dosage: 40 MG, UNK
     Dates: start: 20110820, end: 20110908
  16. ALLOPURINOL [Concomitant]
     Dosage: 300 MG, UNK
     Route: 048
     Dates: start: 20110828, end: 20110908
  17. DOCUSATE SODIUM [Concomitant]
     Dosage: 20 MG, UNK
     Route: 048
     Dates: start: 20110823, end: 20110914
  18. CYCLIZINE [Concomitant]
     Dosage: 150 MG, UNK
     Route: 042
     Dates: start: 20110903, end: 20110914
  19. ACICLOVIR [Concomitant]
     Dosage: 900 MG, UNK
     Route: 048
  20. TRANEXAMIC ACID [Concomitant]
     Dosage: 500 MG, UNK
     Route: 048
     Dates: start: 20110831, end: 20110908
  21. ANTI-D IMMUNOGLOBULIN [Concomitant]
     Dosage: 250 IU, UNK
     Route: 058
     Dates: start: 20110902, end: 20110902
  22. LORAZEPAM [Concomitant]
     Dosage: 1 MG, UNK
     Route: 048
     Dates: start: 20110914, end: 20110914
  23. ONDANSETRON [Concomitant]
     Dosage: 8 MG, UNK
     Route: 048
     Dates: start: 20110822, end: 20110828
  24. PARACETAMOL [Concomitant]
     Dosage: 1 G, UNK
     Route: 048
     Dates: start: 20110817, end: 20110828
  25. CODEINE [Concomitant]
     Dosage: 30 MG, UNK
     Route: 048
     Dates: start: 20110817, end: 20110820
  26. ORAMORPH [Concomitant]
     Dosage: 5-10 MG
     Route: 042
     Dates: start: 20110822, end: 20110823
  27. MORPHINE SULFATE [Concomitant]
     Dosage: UNK

REACTIONS (2)
  - Platelet count increased [Recovered/Resolved]
  - Alanine aminotransferase increased [Recovered/Resolved]
